FAERS Safety Report 17218210 (Version 1)
Quarter: 2020Q1

REPORT INFORMATION
  Report Type: Spontaneous
  Country: US (occurrence: US)
  Receive Date: 20191230
  Receipt Date: 20191230
  Transmission Date: 20200409
  Serious: Yes (Disabling)
  Sender: FDA-Public Use
  Company Number: None

PATIENT
  Sex: Female
  Weight: 81.65 kg

DRUGS (1)
  1. NEXPLANON [Suspect]
     Active Substance: ETONOGESTREL
     Dates: start: 20190104

REACTIONS (7)
  - Depression [None]
  - Speech disorder [None]
  - Lethargy [None]
  - Anxiety [None]
  - Suicidal ideation [None]
  - Tremor [None]
  - Weight increased [None]
